FAERS Safety Report 20526735 (Version 1)
Quarter: 2022Q1

REPORT INFORMATION
  Report Type: Spontaneous
  Country: US (occurrence: None)
  Receive Date: 20220227
  Receipt Date: 20220227
  Transmission Date: 20220424
  Serious: Yes (Disabling)
  Sender: FDA-Public Use
  Company Number: None

PATIENT
  Age: 41 Year
  Sex: Female
  Weight: 49.5 kg

DRUGS (1)
  1. CLONAZEPAM [Suspect]
     Active Substance: CLONAZEPAM
     Indication: Anxiety
     Dosage: OTHER QUANTITY : 1 TABLET(S);?FREQUENCY : AS NEEDED;?
     Route: 048

REACTIONS (7)
  - Dizziness [None]
  - Balance disorder [None]
  - Nausea [None]
  - Toxicity to various agents [None]
  - Loss of personal independence in daily activities [None]
  - Emotional disorder [None]
  - Withdrawal syndrome [None]

NARRATIVE: CASE EVENT DATE: 20210712
